FAERS Safety Report 7648406-1 (Version None)
Quarter: 2011Q3

REPORT INFORMATION
  Report Type: 
  Country: None (occurrence: None)
  Receive Date: 20110801
  Receipt Date: 20110728
  Transmission Date: 20111222
  Serious: Yes (Life-Threatening)
  Sender: FDA-Public Use
  Company Number: US-ASTRAZENECA-2010SE54986

PATIENT
  Age: 72 Year
  Sex: Female
  Weight: 70.3 kg

DRUGS (22)
  1. ACCOLATE [Suspect]
     Indication: ASTHMA
     Route: 048
  2. BACTRIM [Concomitant]
     Indication: SINUSITIS
  3. NEURONTIN [Concomitant]
     Indication: ARTHRITIS
  4. PRILOSEC OTC [Concomitant]
     Route: 048
  5. NEURONTIN [Concomitant]
     Indication: CROHN'S DISEASE
  6. PULMICORT FLEXHALER [Suspect]
     Route: 055
  7. PULMICORT FLEXHALER [Suspect]
     Indication: ASTHMA
     Route: 055
     Dates: start: 20101021
  8. CELEBREX [Concomitant]
     Indication: OSTEOARTHRITIS
  9. DILTIAZEM [Concomitant]
     Indication: HYPERTENSION
  10. PREMPRO [Concomitant]
  11. VITAMIN TAB [Concomitant]
  12. PULMICORT FLEXHALER [Suspect]
     Route: 055
  13. ENTOCORT EC [Suspect]
     Indication: CROHN'S DISEASE
     Route: 048
  14. ALBUTEROL SULFATE AUTOHALER [Concomitant]
  15. SYMBICORT [Suspect]
     Indication: ASTHMA
     Route: 055
     Dates: start: 20110722, end: 20110723
  16. TRAZODONE HYDROCHLORIDE [Concomitant]
     Indication: ARTHRITIS
  17. CELEBREX [Concomitant]
     Indication: PAIN
  18. LIALDA [Concomitant]
     Indication: CROHN'S DISEASE
  19. FLONASE [Concomitant]
  20. DULERA ORAL INHALATION [Concomitant]
     Indication: ASTHMA
  21. ALLEGRA [Concomitant]
     Indication: MULTIPLE ALLERGIES
  22. TRAZODONE HYDROCHLORIDE [Concomitant]
     Indication: CROHN'S DISEASE

REACTIONS (10)
  - DRUG INEFFECTIVE [None]
  - INAPPROPRIATE SCHEDULE OF DRUG ADMINISTRATION [None]
  - DYSPNOEA [None]
  - CHEST X-RAY ABNORMAL [None]
  - BLOOD PRESSURE INCREASED [None]
  - ANAPHYLACTIC REACTION [None]
  - WHEEZING [None]
  - PNEUMONIA PRIMARY ATYPICAL [None]
  - PYREXIA [None]
  - ASTHMA [None]
